FAERS Safety Report 5397554-8 (Version None)
Quarter: 2007Q3

REPORT INFORMATION
  Report Type: 
  Country: None (occurrence: None)
  Receive Date: 20070724
  Receipt Date: 20070724
  Transmission Date: 20080115
  Serious: Yes (Hospitalization)
  Sender: FDA-Public Use
  Company Number: None

PATIENT
  Age: 36 Year
  Sex: Female
  Weight: 69.3 kg

DRUGS (2)
  1. WARFARIN SODIUM [Suspect]
     Indication: COAGULOPATHY
     Dosage: 2.5 MG? DAILY PO
     Route: 048
     Dates: start: 20000101
  2. WARFARIN SODIUM [Suspect]
     Indication: DEEP VEIN THROMBOSIS
     Dosage: 2.5 MG? DAILY PO
     Route: 048
     Dates: start: 20000101

REACTIONS (5)
  - ABDOMINAL PAIN [None]
  - CONTUSION [None]
  - HAEMATURIA [None]
  - INTERNATIONAL NORMALISED RATIO INCREASED [None]
  - RECTAL HAEMORRHAGE [None]
